FAERS Safety Report 20606358 (Version 3)
Quarter: 2022Q2

REPORT INFORMATION
  Report Type: Spontaneous
  Country: US (occurrence: None)
  Receive Date: 20220317
  Receipt Date: 20220619
  Transmission Date: 20220721
  Serious: Yes (Other)
  Sender: FDA-Public Use
  Company Number: US-ROCHE-3043807

PATIENT
  Age: 43 Year
  Sex: Male

DRUGS (4)
  1. OCREVUS [Suspect]
     Active Substance: OCRELIZUMAB
     Indication: Multiple sclerosis
     Dosage: STRENGTH: 300 MG/10 ML
     Route: 042
     Dates: start: 202012
  2. COZAAR [Concomitant]
     Active Substance: LOSARTAN POTASSIUM
  3. REVATIO [Concomitant]
     Active Substance: SILDENAFIL CITRATE
  4. CIALIS [Concomitant]
     Active Substance: TADALAFIL

REACTIONS (7)
  - Multiple sclerosis relapse [Unknown]
  - COVID-19 [Unknown]
  - Myalgia [Unknown]
  - Anxiety [Unknown]
  - Nervousness [Unknown]
  - Insomnia [Unknown]
  - Dizziness [Unknown]

NARRATIVE: CASE EVENT DATE: 20220101
